FAERS Safety Report 5867249-2 (Version None)
Quarter: 2008Q3

REPORT INFORMATION
  Report Type: 
  Country: None (occurrence: None)
  Receive Date: 20080902
  Receipt Date: 20080827
  Transmission Date: 20090109
  Serious: Yes (Hospitalization)
  Sender: FDA-Public Use
  Company Number: US-MERCK-0808USA03633

PATIENT
  Sex: Female

DRUGS (1)
  1. COZAAR [Suspect]
     Route: 048

REACTIONS (1)
  - PULMONARY OEDEMA [None]
